FAERS Safety Report 8488106-1 (Version None)
Quarter: 2012Q3

REPORT INFORMATION
  Report Type: 
  Country: None (occurrence: None)
  Receive Date: 20120705
  Receipt Date: 20120621
  Transmission Date: 20120928
  Serious: Yes (Death, Life-Threatening, Other)
  Sender: FDA-Public Use
  Company Number: JP-CELGENEUS-087-50794-11083238

PATIENT
  Sex: Male
  Weight: 50 kg

DRUGS (45)
  1. ZOFRAN [Concomitant]
     Route: 065
     Dates: start: 20110613, end: 20110619
  2. ADVAIR DISKUS 100/50 [Concomitant]
     Route: 065
     Dates: start: 20110523
  3. MAXIPIME [Concomitant]
     Route: 065
     Dates: start: 20110907, end: 20110909
  4. BIO-THREE [Concomitant]
     Route: 065
     Dates: end: 20111012
  5. NEUTROGIN [Concomitant]
     Route: 065
     Dates: start: 20110909, end: 20110915
  6. MEROPENEM [Concomitant]
     Route: 065
     Dates: start: 20110920, end: 20110922
  7. OMEGACIN [Concomitant]
     Route: 065
     Dates: start: 20111003, end: 20111007
  8. VIDAZA [Suspect]
     Dosage: 75 MILLIGRAM/SQ. METER
     Route: 058
     Dates: start: 20110815, end: 20110821
  9. SULFAMETHOXAZOLE AND TRIMETHOPRIM [Concomitant]
     Route: 065
     Dates: start: 20110523
  10. FLUCONAZOLE [Concomitant]
     Route: 065
     Dates: start: 20110523
  11. FAMOTIDINE [Concomitant]
     Route: 065
     Dates: start: 20110713, end: 20111012
  12. SPIRIVA [Concomitant]
     Route: 065
     Dates: start: 20110523
  13. ANTIBIOTICS [Concomitant]
     Indication: NEUTROPENIA
     Route: 065
  14. PENTAMIDINE ISETHIONATE [Concomitant]
     Route: 065
     Dates: start: 20110907, end: 20110907
  15. IMIPENEM AND CILASTATIN SODIUM [Concomitant]
     Route: 065
     Dates: start: 20111022, end: 20111104
  16. ADVAIR DISKUS 100/50 [Concomitant]
     Route: 065
     Dates: start: 20110713
  17. MAXIPIME [Concomitant]
     Route: 065
     Dates: start: 20110525, end: 20110530
  18. ZOSYN [Concomitant]
     Route: 065
     Dates: start: 20111007, end: 20111014
  19. ZOFRAN [Concomitant]
     Route: 065
     Dates: start: 20110713, end: 20110719
  20. ZOFRAN [Concomitant]
     Route: 065
     Dates: start: 20110815, end: 20110821
  21. NEUTROGIN [Concomitant]
     Route: 065
     Dates: start: 20110920, end: 20111103
  22. FUNGUARD [Concomitant]
     Route: 065
     Dates: start: 20110915, end: 20110922
  23. TEICOPLANIN [Concomitant]
     Route: 065
     Dates: start: 20110923, end: 20111003
  24. VIDAZA [Suspect]
     Dosage: 75 MILLIGRAM/SQ. METER
     Route: 058
     Dates: start: 20110523, end: 20110524
  25. VIDAZA [Suspect]
     Dosage: 75 MILLIGRAM/SQ. METER
     Route: 058
     Dates: start: 20110614, end: 20110620
  26. ALLEGRA [Concomitant]
     Route: 065
     Dates: start: 20110524
  27. SPIRIVA [Concomitant]
     Route: 065
     Dates: start: 20110713
  28. NEUPOGEN [Concomitant]
     Indication: NEUTROPENIA
     Route: 065
  29. ANTIFUNGAL [Concomitant]
     Indication: NEUTROPENIA
     Route: 065
  30. VFEND [Concomitant]
     Route: 065
     Dates: start: 20110923, end: 20111004
  31. DORIPENEM MONOHYDRATE [Concomitant]
     Route: 065
     Dates: start: 20110923, end: 20111003
  32. FLUCONAZOLE [Concomitant]
     Route: 065
     Dates: start: 20110713, end: 20110922
  33. FAMOTIDINE [Concomitant]
     Route: 065
     Dates: start: 20110523
  34. GARENOXACIN MESYLATE [Concomitant]
     Route: 065
     Dates: start: 20110810, end: 20110815
  35. VIDAZA [Suspect]
     Dosage: 75 MILLIGRAM/SQ. METER
     Route: 058
     Dates: start: 20110713, end: 20110719
  36. ZOFRAN [Concomitant]
     Route: 065
     Dates: start: 20110523, end: 20110524
  37. LEVOFLOXACIN [Concomitant]
     Route: 065
     Dates: start: 20110715, end: 20110717
  38. FUNGUARD [Concomitant]
     Route: 065
     Dates: start: 20111007, end: 20111104
  39. OMEGACIN [Concomitant]
     Route: 065
     Dates: start: 20111014, end: 20111021
  40. PLATELETS [Concomitant]
     Route: 065
  41. SULFAMETHOXAZOLE AND TRIMETHOPRIM [Concomitant]
     Route: 065
     Dates: start: 20110713, end: 20110907
  42. ALLEGRA [Concomitant]
     Route: 065
     Dates: start: 20110718, end: 20110803
  43. ALLEGRA [Concomitant]
     Route: 065
     Dates: start: 20110824, end: 20110830
  44. CLARITHROMYCIN [Concomitant]
     Route: 065
     Dates: end: 20110727
  45. AMIKAMYCIN [Concomitant]
     Route: 065
     Dates: start: 20110915, end: 20110922

REACTIONS (14)
  - WHITE BLOOD CELL COUNT DECREASED [None]
  - RENAL DISORDER [None]
  - GASTROINTESTINAL HAEMORRHAGE [None]
  - ANAEMIA [None]
  - HYPERPHOSPHATAEMIA [None]
  - FEBRILE NEUTROPENIA [None]
  - THROMBOCYTOPENIA [None]
  - NEUTROPENIA [None]
  - HYPOKALAEMIA [None]
  - NEUTROPHIL COUNT DECREASED [None]
  - HAEMOCONCENTRATION [None]
  - HYPERCHLORAEMIA [None]
  - PLATELET COUNT DECREASED [None]
  - HYPERNATRAEMIA [None]
